FAERS Safety Report 5254717-X (Version None)
Quarter: 2007Q1

REPORT INFORMATION
  Report Type: 
  Country: None (occurrence: None)
  Receive Date: 20070227
  Receipt Date: 20070209
  Transmission Date: 20070707
  Serious: Yes (Hospitalization)
  Sender: FDA-Public Use
  Company Number: 15695

PATIENT
  Age: 78 Year
  Sex: Male

DRUGS (12)
  1. CYTARABINE [Suspect]
     Indication: ACUTE MYELOID LEUKAEMIA
     Dosage: 20 MG/M2 BID SC
     Route: 058
     Dates: start: 20060802, end: 20060908
  2. CORICIDIN /00106701/ [Concomitant]
  3. ACETAMINOPHEN [Concomitant]
  4. VITAMIN B12 /00056201/ [Concomitant]
  5. FINASTERIDE [Concomitant]
  6. ATENOLOL [Concomitant]
  7. PANTOPRAZOLE SODIUM [Concomitant]
  8. POTASSIUM CHLORIDE [Concomitant]
  9. ALLOPURINOL [Concomitant]
  10. PREDNISOLONE ACETATE [Concomitant]
  11. KETOROLAC TROMETHAMINE [Concomitant]
  12. CENTRUM SILVER [Concomitant]

REACTIONS (11)
  - DIVERTICULUM [None]
  - GASTROINTESTINAL HAEMORRHAGE [None]
  - GINGIVAL DISORDER [None]
  - HAEMOGLOBIN DECREASED [None]
  - HEADACHE [None]
  - NEUTROPENIA [None]
  - RALES [None]
  - RENAL FAILURE ACUTE [None]
  - SINUSITIS [None]
  - THROMBOCYTOPENIA [None]
  - WHITE BLOOD CELL COUNT DECREASED [None]
